FAERS Safety Report 7019956-6 (Version None)
Quarter: 2010Q3

REPORT INFORMATION
  Report Type: 
  Country: None (occurrence: None)
  Receive Date: 20100929
  Receipt Date: 20100921
  Transmission Date: 20110219
  Serious: Yes (Death, Life-Threatening)
  Sender: FDA-Public Use
  Company Number: AT-JNJFOC-20100907926

PATIENT
  Age: 41 Year
  Sex: Female
  Weight: 128 kg

DRUGS (6)
  1. TOPAMAX [Suspect]
     Indication: PRODUCT USED FOR UNKNOWN INDICATION
     Route: 065
  2. CITALOPRAM HYDROBROMIDE [Suspect]
     Indication: PRODUCT USED FOR UNKNOWN INDICATION
     Route: 065
  3. CAFFEINE [Concomitant]
     Route: 065
  4. FLUNITRAZEPAM [Concomitant]
     Indication: PRODUCT USED FOR UNKNOWN INDICATION
     Route: 065
  5. NICOTINE [Concomitant]
     Route: 065
  6. ALCOHOL [Concomitant]
     Route: 065

REACTIONS (3)
  - COMA [None]
  - DRUG TOXICITY [None]
  - SHOCK [None]
